FAERS Safety Report 6551022-6 (Version None)
Quarter: 2010Q1

REPORT INFORMATION
  Report Type: 
  Country: None (occurrence: None)
  Receive Date: 20100122
  Receipt Date: 20100122
  Transmission Date: 20100710
  Serious: No
  Sender: FDA-Public Use
  Company Number: None

PATIENT
  Sex: Male
  Weight: 14.5 kg

DRUGS (1)
  1. MOTRIN [Suspect]
     Indication: OSTEOCHONDROSIS
     Dosage: 100MG (1 TAB) ONCE AT NIGHTTIME ORAL
     Route: 048
     Dates: start: 20090701

REACTIONS (6)
  - ABDOMINAL PAIN [None]
  - ABDOMINAL RIGIDITY [None]
  - CONSTIPATION [None]
  - CRYING [None]
  - DIARRHOEA [None]
  - PRODUCT QUALITY ISSUE [None]
